FAERS Safety Report 6383022-3 (Version None)
Quarter: 2009Q3

REPORT INFORMATION
  Report Type: 
  Country: None (occurrence: None)
  Receive Date: 20090930
  Receipt Date: 20090928
  Transmission Date: 20100115
  Serious: Yes (Hospitalization)
  Sender: FDA-Public Use
  Company Number: US-GILEAD-2009-0024482

PATIENT
  Sex: Female

DRUGS (15)
  1. LETAIRIS [Suspect]
     Indication: PULMONARY ARTERIAL HYPERTENSION
  2. REVATIO [Concomitant]
  3. COREG [Concomitant]
  4. PLAVIX [Concomitant]
  5. TRICOR [Concomitant]
  6. ZETIA [Concomitant]
  7. LASIX [Concomitant]
  8. MEDROL [Concomitant]
  9. FLEXERIL [Concomitant]
  10. LANTUS [Concomitant]
  11. PROCRIT [Concomitant]
  12. NEXIUM [Concomitant]
  13. CENTRUM [Concomitant]
  14. OSCAL D [Concomitant]
  15. POTASSIUM CHLORIDE [Concomitant]

REACTIONS (3)
  - CONFUSIONAL STATE [None]
  - FALL [None]
  - FRACTURE [None]
